FAERS Safety Report 6818875-5 (Version None)
Quarter: 2010Q3

REPORT INFORMATION
  Report Type: 
  Country: None (occurrence: None)
  Receive Date: 20100707
  Receipt Date: 20100311
  Transmission Date: 20110219
  Serious: Yes (Hospitalization, Other)
  Sender: FDA-Public Use
  Company Number: US-ASTRAZENECA-2008UW11243

PATIENT
  Age: 29 Year
  Sex: Male
  Weight: 99.8 kg

DRUGS (21)
  1. SEROQUEL [Suspect]
     Indication: FEELING OF RELAXATION
     Route: 048
     Dates: start: 19980101, end: 19990101
  2. SEROQUEL [Suspect]
     Indication: SLEEP DISORDER
     Route: 048
     Dates: start: 19980101, end: 19990101
  3. SEROQUEL [Suspect]
     Indication: BIPOLAR DISORDER
     Route: 048
     Dates: start: 19980101, end: 19990101
  4. SEROQUEL [Suspect]
     Route: 048
     Dates: start: 20080101
  5. SEROQUEL [Suspect]
     Route: 048
     Dates: start: 20080101
  6. SEROQUEL [Suspect]
     Route: 048
     Dates: start: 20080101
  7. SEROQUEL [Suspect]
     Route: 048
     Dates: start: 20060628
  8. SEROQUEL [Suspect]
     Route: 048
     Dates: start: 20060628
  9. SEROQUEL [Suspect]
     Route: 048
     Dates: start: 20060628
  10. LITHIUM CARBONATE [Concomitant]
     Dates: start: 19890101
  11. NAVANE [Concomitant]
     Dates: start: 19880101
  12. CORGENGEN [Concomitant]
     Dates: start: 19890101
  13. TEGRETOL [Concomitant]
     Dates: start: 19890101
  14. CLOZARIL [Concomitant]
     Dates: start: 20060101
  15. HALDOL [Concomitant]
     Dates: start: 20080901
  16. STELAZINE [Concomitant]
     Dates: start: 19890101
  17. CYMBALTA [Concomitant]
     Dates: start: 20060703
  18. COZAAR [Concomitant]
     Dates: start: 20060703
  19. ENALAPRIL MALEATE [Concomitant]
     Dates: start: 20060703
  20. DIGOXIN [Concomitant]
     Dates: start: 20060703
  21. ALDACTONE [Concomitant]
     Dates: start: 20060703

REACTIONS (8)
  - DIABETES MELLITUS [None]
  - DIABETES MELLITUS INADEQUATE CONTROL [None]
  - GASTROINTESTINAL DISORDER [None]
  - HEADACHE [None]
  - NAUSEA [None]
  - NEUROPATHY PERIPHERAL [None]
  - TOOTH DISORDER [None]
  - VOMITING [None]
